FAERS Safety Report 11396044 (Version 2)
Quarter: 2015Q3

REPORT INFORMATION
  Report Type: Report from Study
  Country: CH (occurrence: CH)
  Receive Date: 20150819
  Receipt Date: 20150819
  Transmission Date: 20151125
  Serious: Yes (Hospitalization)
  Sender: FDA-Public Use
  Company Number: PHHY2015CH052511

PATIENT
  Age: 82 Year
  Sex: Male
  Weight: 63.6 kg

DRUGS (17)
  1. CONCOR [Concomitant]
     Active Substance: BISOPROLOL FUMARATE
     Indication: SINUS RHYTHM
     Dosage: 1.5 DF, QD
     Route: 065
  2. KCL RETARD ZYMA [Concomitant]
     Active Substance: POTASSIUM CHLORIDE
     Indication: PRODUCT USED FOR UNKNOWN INDICATION
     Dosage: 1 DF, BID
     Route: 065
  3. ENTRESTO [Suspect]
     Active Substance: SACUBITRIL\VALSARTAN
     Dosage: 1 DF, QD
     Route: 048
     Dates: start: 20150404, end: 20150420
  4. ENTRESTO [Suspect]
     Active Substance: SACUBITRIL\VALSARTAN
     Dosage: 2 DF, QD
     Route: 048
     Dates: start: 20150420
  5. NEBIVOLOL. [Concomitant]
     Active Substance: NEBIVOLOL
     Indication: PRODUCT USED FOR UNKNOWN INDICATION
     Dosage: 5 MG, UNK
     Route: 065
  6. ENTRESTO [Suspect]
     Active Substance: SACUBITRIL\VALSARTAN
     Dosage: 200 MG, BID
     Route: 048
     Dates: start: 20150521
  7. MAGNESIUM DIASPORAL 300 [Concomitant]
     Indication: PRODUCT USED FOR UNKNOWN INDICATION
     Dosage: 1 DF, QOD
     Route: 065
  8. TORASEMIDE [Concomitant]
     Active Substance: TORSEMIDE
     Indication: PRODUCT USED FOR UNKNOWN INDICATION
     Dosage: 2 DF, QD
     Route: 065
  9. ESCODARONE [Concomitant]
     Indication: PRODUCT USED FOR UNKNOWN INDICATION
     Dosage: 1 DF, QD
     Route: 065
  10. ENTRESTO [Suspect]
     Active Substance: SACUBITRIL\VALSARTAN
     Dosage: 0.5 DF, UNK
     Dates: start: 20150727
  11. ASPIRIN CARDIO [Concomitant]
     Active Substance: ASPIRIN
     Indication: PRODUCT USED FOR UNKNOWN INDICATION
     Dosage: 100 MG, QD
     Route: 065
  12. MAGNESIUM DIASPORAL 300 [Concomitant]
     Indication: PRODUCT USED FOR UNKNOWN INDICATION
  13. AMIODARONE [Concomitant]
     Active Substance: AMIODARONE
     Indication: SINUS RHYTHM
     Route: 065
  14. DIGOXIN SANDOZ [Suspect]
     Active Substance: DIGOXIN
     Indication: PRODUCT USED FOR UNKNOWN INDICATION
     Route: 065
  15. SIMVASTIN [Concomitant]
     Active Substance: SIMVASTATIN
     Indication: PRODUCT USED FOR UNKNOWN INDICATION
     Dosage: 1 DF, QD
     Route: 065
  16. ENTRESTO [Suspect]
     Active Substance: SACUBITRIL\VALSARTAN
     Indication: CARDIAC FAILURE
     Dosage: 50 MG, BID (2 DF)
     Route: 048
     Dates: start: 20150401, end: 20150404
  17. DUODART [Suspect]
     Active Substance: DUTASTERIDE\TAMSULOSIN
     Indication: PRODUCT USED FOR UNKNOWN INDICATION
     Route: 065

REACTIONS (32)
  - Hyponatraemia [Unknown]
  - Pulmonary congestion [Unknown]
  - Cardioactive drug level increased [Unknown]
  - Ventricular hypokinesia [Unknown]
  - Pericardial effusion [Unknown]
  - Hypotension [Recovering/Resolving]
  - General physical health deterioration [Recovering/Resolving]
  - Weight decreased [Recovering/Resolving]
  - Dyspnoea [Unknown]
  - Hypertensive heart disease [Unknown]
  - Pleural effusion [Unknown]
  - Oedema [Recovering/Resolving]
  - Renal failure [Unknown]
  - Blood creatinine increased [Unknown]
  - Ejection fraction decreased [Unknown]
  - Aortic valve incompetence [Unknown]
  - Tricuspid valve incompetence [Unknown]
  - Orthostatic hypotension [Recovered/Resolved]
  - Syncope [Recovered/Resolved]
  - Dilatation ventricular [Unknown]
  - Dilatation atrial [Unknown]
  - Mitral valve incompetence [Unknown]
  - Cauda equina syndrome [Unknown]
  - Ventricular extrasystoles [Unknown]
  - Cardiac failure congestive [Unknown]
  - Pulmonary hypertension [Unknown]
  - Orthopnoea [Unknown]
  - Normochromic normocytic anaemia [Unknown]
  - Liver disorder [Unknown]
  - Decreased appetite [Unknown]
  - Cardiac failure chronic [Unknown]
  - Gynaecomastia [Unknown]

NARRATIVE: CASE EVENT DATE: 20100727
